FAERS Safety Report 6457099-0 (Version None)
Quarter: 2009Q4

REPORT INFORMATION
  Report Type: 
  Country: None (occurrence: None)
  Receive Date: 20091125
  Receipt Date: 20091118
  Transmission Date: 20100525
  Serious: Yes (Death)
  Sender: FDA-Public Use
  Company Number: B0596218A

PATIENT
  Age: 39 Year
  Sex: Female

DRUGS (2)
  1. TYVERB [Suspect]
     Dosage: 1250MG PER DAY
     Route: 065
     Dates: start: 20080901, end: 20090601
  2. CAPECITABINE [Concomitant]
     Route: 065
     Dates: start: 20080901, end: 20090601

REACTIONS (5)
  - ASTHENIA [None]
  - DISEASE PROGRESSION [None]
  - PALMAR-PLANTAR ERYTHRODYSAESTHESIA SYNDROME [None]
  - RASH [None]
  - SKIN DISCOLOURATION [None]
